FAERS Safety Report 4336115-6 (Version None)
Quarter: 2004Q2

REPORT INFORMATION
  Report Type: 
  Country: None (occurrence: None)
  Receive Date: 20040409
  Receipt Date: 20040401
  Transmission Date: 20050107
  Serious: Yes (Hospitalization)
  Sender: FDA-Public Use
  Company Number: FR-MERCK-0404FRA00001

PATIENT
  Age: 67 Year
  Sex: Female
  Weight: 70 kg

DRUGS (6)
  1. ACETAMINOPHEN AND PROPOXYPHENE HYDROCHLORIDE [Suspect]
     Route: 048
  2. GLICLAZIDE [Suspect]
     Indication: DIABETES MELLITUS
     Route: 048
  3. INDOCIN [Suspect]
     Route: 048
  4. INFLIXIMAB [Suspect]
     Indication: RHEUMATOID ARTHRITIS
     Route: 051
     Dates: start: 20001010, end: 20031217
  5. RILMENIDINE PHOSPHATE [Suspect]
     Indication: ESSENTIAL HYPERTENSION
     Route: 048
  6. SOTALOL HYDROCHLORIDE [Suspect]
     Route: 048

REACTIONS (1)
  - RECTAL CANCER [None]
